FAERS Safety Report 7920201-5 (Version None)
Quarter: 2011Q4

REPORT INFORMATION
  Report Type: 
  Country: None (occurrence: None)
  Receive Date: 20111117
  Receipt Date: 20111115
  Transmission Date: 20120403
  Serious: Yes (Hospitalization, Congenital Anomaly, Other)
  Sender: FDA-Public Use
  Company Number: US-PFIZER INC-2010109642

PATIENT
  Sex: Male

DRUGS (1)
  1. ZOLOFT [Suspect]
     Dosage: UNK
     Route: 064

REACTIONS (4)
  - FOETAL EXPOSURE DURING PREGNANCY [None]
  - CRANIOSYNOSTOSIS [None]
  - DERMOID CYST [None]
  - OBSESSIVE-COMPULSIVE PERSONALITY DISORDER [None]
